FAERS Safety Report 9459930 (Version 2)
Quarter: 2014Q2

REPORT INFORMATION
  Report Type: Spontaneous
  Country: US (occurrence: None)
  Receive Date: 20130812
  Receipt Date: 20140514
  Transmission Date: 20141212
  Serious: Yes (Death)
  Sender: FDA-Public Use
  Company Number: 2013-334

PATIENT
  Age: 73 Year
  Sex: Male

DRUGS (5)
  1. FAZACLO (CLOZAPINE, USP) ODT (ORAL DISINTEGRATING TABLET) [Suspect]
     Indication: SCHIZOPHRENIA
     Route: 048
     Dates: start: 20130521
  2. ADVAIR (FLUTICASONE PROPIONATE, SALMETEROL XINAFOATE) [Concomitant]
  3. ALBUTEROL (SALBUTAMOL SULFATE) [Concomitant]
  4. INSULIN (INSULIN PROCINE) [Concomitant]
  5. METOPROLOL (METOPROLOL TARTRATE) [Concomitant]

REACTIONS (3)
  - Hospitalisation [None]
  - Lung cancer metastatic [None]
  - Disease progression [None]
